FAERS Safety Report 18101142 (Version 2)
Quarter: 2020Q3

REPORT INFORMATION
  Report Type: Spontaneous
  Country: US (occurrence: US)
  Receive Date: 20200801
  Receipt Date: 20200911
  Transmission Date: 20201103
  Serious: No
  Sender: FDA-Public Use
  Company Number: US-ASTRAZENECA-2020SE95541

PATIENT
  Sex: Male
  Weight: 117.9 kg

DRUGS (3)
  1. BYDUREON [Suspect]
     Active Substance: EXENATIDE
     Indication: TYPE 2 DIABETES MELLITUS
     Route: 058
     Dates: start: 201805
  2. LOSARTAN POTASSIUM. [Concomitant]
     Active Substance: LOSARTAN POTASSIUM
     Dosage: 12.5MG
  3. GLIPIPRIDE [Concomitant]
     Dosage: 5 OR 10 MG

REACTIONS (7)
  - Blood pressure decreased [Unknown]
  - Heart rate decreased [Unknown]
  - Device leakage [Unknown]
  - Visual impairment [Unknown]
  - Blood glucose decreased [Not Recovered/Not Resolved]
  - Headache [Unknown]
  - Intentional product misuse [Unknown]
